FAERS Safety Report 4345254-5 (Version None)
Quarter: 2004Q2

REPORT INFORMATION
  Report Type: 
  Country: None (occurrence: None)
  Receive Date: 20040423
  Receipt Date: 20040414
  Transmission Date: 20050107
  Serious: Yes (Hospitalization, Other)
  Sender: FDA-Public Use
  Company Number: PHBS2004NL05113

PATIENT
  Age: 38 Year
  Sex: Male

DRUGS (1)
  1. NEORAL [Suspect]
     Indication: NEPHROTIC SYNDROME
     Dosage: 5 MG/KGDAY

REACTIONS (18)
  - ANAEMIA [None]
  - ASTHENIA [None]
  - C-REACTIVE PROTEIN INCREASED [None]
  - CASTLEMAN'S DISEASE [None]
  - COUGH [None]
  - DYSPNOEA [None]
  - FATIGUE [None]
  - HEPATOSPLENOMEGALY [None]
  - HERPES VIRUS INFECTION [None]
  - HYPOALBUMINAEMIA [None]
  - KAPOSI'S SARCOMA [None]
  - LUNG INFILTRATION [None]
  - LYMPHADENOPATHY [None]
  - NIGHT SWEATS [None]
  - OEDEMA [None]
  - PYREXIA [None]
  - RENAL FAILURE [None]
  - THROMBOCYTOPENIA [None]
